FAERS Safety Report 21664283 (Version 1)
Quarter: 2022Q4

REPORT INFORMATION
  Report Type: Report from Study
  Country: US (occurrence: US)
  Receive Date: 20221130
  Receipt Date: 20221130
  Transmission Date: 20230112
  Serious: No
  Sender: FDA-Public Use
  Company Number: US-ABBVIE-4168432

PATIENT
  Age: 64 Year
  Sex: Male

DRUGS (5)
  1. HUMIRA [Suspect]
     Active Substance: ADALIMUMAB
     Indication: Product used for unknown indication
     Route: 058
     Dates: start: 2020
  2. PFIZERPEN [Concomitant]
     Active Substance: PENICILLIN G POTASSIUM
     Indication: COVID-19 immunisation
     Dosage: PFIZER
     Route: 030
     Dates: start: 20211105, end: 20211105
  3. PFIZERPEN [Concomitant]
     Active Substance: PENICILLIN G POTASSIUM
     Indication: COVID-19 immunisation
     Dosage: PFIZER
     Route: 030
     Dates: start: 20220427, end: 20220427
  4. PFIZERPEN [Concomitant]
     Active Substance: PENICILLIN G POTASSIUM
     Indication: COVID-19 immunisation
     Dosage: PFIZER
     Route: 030
     Dates: start: 20210416, end: 20210416
  5. PFIZERPEN [Concomitant]
     Active Substance: PENICILLIN G POTASSIUM
     Indication: COVID-19 immunisation
     Dosage: PFIZER
     Route: 030
     Dates: start: 20210319, end: 20210319

REACTIONS (2)
  - Injection site haemorrhage [Recovered/Resolved]
  - Injection site indentation [Recovered/Resolved]

NARRATIVE: CASE EVENT DATE: 20221004
